FAERS Safety Report 6546213-4 (Version None)
Quarter: 2010Q1

REPORT INFORMATION
  Report Type: 
  Country: None (occurrence: None)
  Receive Date: 20100122
  Receipt Date: 20100112
  Transmission Date: 20100710
  Serious: Yes (Life-Threatening)
  Sender: FDA-Public Use
  Company Number: CH-SOLVAY-00310000096

PATIENT
  Age: 4 Month
  Sex: Female
  Weight: 4 kg

DRUGS (2)
  1. CREON [Suspect]
     Indication: PANCREATIC INSUFFICIENCY
     Dosage: DAILY DOSE:  UNKNOWN, AS USED: 4000 LIPASE UNITS AT EACH MEAL, FREQUENCY: AS NEEDED
     Route: 048
     Dates: start: 20090101
  2. CREON [Suspect]
     Dosage: DAILY DOSE: 24000 INTERNATIONAL UNIT(S), VIA GASTRO-TUBE
     Route: 050

REACTIONS (2)
  - APNOEA [None]
  - ASPIRATION [None]
